FAERS Safety Report 17434835 (Version 1)
Quarter: 2020Q1

REPORT INFORMATION
  Report Type: Report from Study
  Country: BR (occurrence: BR)
  Receive Date: 20200219
  Receipt Date: 20200219
  Transmission Date: 20200409
  Serious: Yes (Hospitalization, Other)
  Sender: FDA-Public Use
  Company Number: NVSC2020BR042809

PATIENT
  Age: 62 Year
  Sex: Female

DRUGS (4)
  1. HYDROCHLOROTHIAZIDE. [Suspect]
     Active Substance: HYDROCHLOROTHIAZIDE
     Indication: BLOOD PRESSURE ABNORMAL
     Dosage: 25 OT
     Route: 065
  2. DIOVAN HCT [Suspect]
     Active Substance: HYDROCHLOROTHIAZIDE\VALSARTAN
     Indication: BLOOD PRESSURE ABNORMAL
     Dosage: UNK
     Route: 065
  3. DIOVAN AMLO [Suspect]
     Active Substance: AMLODIPINE\VALSARTAN
     Indication: BLOOD PRESSURE ABNORMAL
     Dosage: UNK
     Route: 065
  4. DIOVAN [Suspect]
     Active Substance: VALSARTAN
     Indication: BLOOD PRESSURE ABNORMAL
     Dosage: 320 MG
     Route: 065
     Dates: start: 2004

REACTIONS (5)
  - Cerebrovascular accident [Not Recovered/Not Resolved]
  - Blood glucose increased [Unknown]
  - Wrong technique in product usage process [Unknown]
  - Swelling [Unknown]
  - Hypertension [Unknown]

NARRATIVE: CASE EVENT DATE: 200709
